FAERS Safety Report 7093131-1 (Version None)
Quarter: 2010Q4

REPORT INFORMATION
  Report Type: 
  Country: None (occurrence: None)
  Receive Date: 20101110
  Receipt Date: 20090520
  Transmission Date: 20110411
  Serious: No
  Sender: FDA-Public Use
  Company Number: US-KINGPHARMUSA00001-K200900614

PATIENT
  Sex: Female
  Weight: 88.435 kg

DRUGS (2)
  1. FLECTOR [Suspect]
     Indication: MUSCLE INJURY
     Dosage: 1 PATCH, UNK
     Route: 061
     Dates: start: 20090514, end: 20090514
  2. OMEPRAZOLE [Concomitant]
     Indication: GASTRIC ULCER HAEMORRHAGE
     Dosage: 40 MG, QD
     Route: 048
     Dates: start: 20070101

REACTIONS (8)
  - ABDOMINAL DISCOMFORT [None]
  - DIZZINESS [None]
  - HAEMATEMESIS [None]
  - PHARYNGEAL OEDEMA [None]
  - PRURITUS [None]
  - RASH [None]
  - URTICARIA [None]
  - VOMITING [None]
